FAERS Safety Report 5216847-8 (Version None)
Quarter: 2007Q1

REPORT INFORMATION
  Report Type: 
  Country: None (occurrence: None)
  Receive Date: 20070119
  Receipt Date: 20070109
  Transmission Date: 20070707
  Serious: No
  Sender: FDA-Public Use
  Company Number: TPA2007A00044

PATIENT
  Age: 46 Year
  Sex: Male
  Weight: 90.7194 kg

DRUGS (1)
  1. ROZEREM [Suspect]
     Indication: INSOMNIA
     Dosage: 8 MG QHS, PER ORAL
     Route: 048
     Dates: start: 20061101

REACTIONS (2)
  - DRUG EFFECT DECREASED [None]
  - MIDDLE INSOMNIA [None]
